FAERS Safety Report 8798874 (Version 2)
Quarter: 2012Q4

REPORT INFORMATION
  Report Type: 
  Country: AU (occurrence: AU)
  Receive Date: 20120920
  Receipt Date: 20121119
  Transmission Date: 20130627
  Serious: Yes (Other)
  Sender: FDA-Public Use
  Company Number: AU-GLAXOSMITHKLINE-B0831281A

PATIENT
  Sex: Female

DRUGS (2)
  1. SERETIDE [Suspect]
     Indication: ASTHMA
     Dosage: 1PUFF In the morning
     Route: 055
  2. BRICANYL [Concomitant]
     Route: 055

REACTIONS (2)
  - Asthma [Not Recovered/Not Resolved]
  - Laryngitis [Recovering/Resolving]
